FAERS Safety Report 25198551 (Version 1)
Quarter: 2025Q2

REPORT INFORMATION
  Report Type: Spontaneous
  Country: US (occurrence: None)
  Receive Date: 20250414
  Receipt Date: 20250414
  Transmission Date: 20250717
  Serious: Yes (Other)
  Sender: FDA-CTU
  Company Number: None

PATIENT
  Age: 47 Year
  Sex: Male
  Weight: 112.5 kg

DRUGS (1)
  1. KESIMPTA [Suspect]
     Active Substance: OFATUMUMAB
     Indication: Relapsing-remitting multiple sclerosis
     Dosage: FREQUENCY : MONTHLY;?
     Route: 058
     Dates: start: 20250126, end: 20250410

REACTIONS (8)
  - Headache [None]
  - Dry mouth [None]
  - Dry eye [None]
  - Vision blurred [None]
  - Impaired healing [None]
  - Skin swelling [None]
  - Skin disorder [None]
  - Muscular weakness [None]

NARRATIVE: CASE EVENT DATE: 20250325
